FAERS Safety Report 18406232 (Version 1)
Quarter: 2020Q4

REPORT INFORMATION
  Report Type: Spontaneous
  Country: GB (occurrence: GB)
  Receive Date: 20201020
  Receipt Date: 20201020
  Transmission Date: 20210114
  Serious: Yes (Hospitalization)
  Sender: FDA-Public Use
  Company Number: GB-DSJP-DSE-2020-130281

PATIENT
  Age: 81 Year
  Sex: Male

DRUGS (1)
  1. EDOXABAN [Suspect]
     Active Substance: EDOXABAN TOSYLATE
     Indication: PRODUCT USED FOR UNKNOWN INDICATION
     Dosage: 60 MG, QD, WAS HELD FOR 1/7 THEN RESTARTED ONCE UTI SUSPECTED
     Route: 048

REACTIONS (3)
  - Urinary tract infection [Unknown]
  - Flank pain [Unknown]
  - Haematuria [Recovered/Resolved]
